FAERS Safety Report 7628546-3 (Version None)
Quarter: 2011Q3

REPORT INFORMATION
  Report Type: 
  Country: None (occurrence: None)
  Receive Date: 20110722
  Receipt Date: 20110707
  Transmission Date: 20111222
  Serious: Yes (Hospitalization)
  Sender: FDA-Public Use
  Company Number: US-ENDO PHARMACEUTICALS INC.-ENDC20110065

PATIENT
  Sex: Male

DRUGS (2)
  1. HYDROCODONE BITARTRATE [Concomitant]
     Dosage: UNKNOWN
     Route: 065
  2. OXYCODONE AND ACETAMINOPHEN [Suspect]
     Indication: NERVE INJURY
     Dosage: 40/1300 MG
     Route: 048
     Dates: start: 20110101

REACTIONS (2)
  - HAEMATEMESIS [None]
  - FOOD POISONING [None]
